APPROVED DRUG PRODUCT: SODIUM CHLORIDE 14.6%
Active Ingredient: SODIUM CHLORIDE
Strength: 50MEQ/20ML (2.5MEQ/ML) **Federal Register determination that product was not discontinued or withdrawn for safety or effectiveness reasons**
Dosage Form/Route: SOLUTION;INTRAVENOUS
Application: N018897 | Product #001
Applicant: HOSPIRA INC
Approved: Jul 20, 1984 | RLD: Yes | RS: No | Type: DISCN